FAERS Safety Report 7834906-8 (Version None)
Quarter: 2011Q4

REPORT INFORMATION
  Report Type: 
  Country: None (occurrence: None)
  Receive Date: 20111020
  Receipt Date: 20111007
  Transmission Date: 20120403
  Serious: Yes (Hospitalization)
  Sender: FDA-Public Use
  Company Number: 1000024678

PATIENT
  Age: 84 Year
  Sex: Male

DRUGS (3)
  1. MEMANTINE [Suspect]
     Dosage: 20 MG (20 MG, 1 IN 1 D)
     Dates: start: 20110625, end: 20110817
  2. MEMANTINE [Suspect]
     Dosage: 20 MG (20 MG, 1 IN 1 D)
     Dates: start: 20110101
  3. ARICEPT 9DONEPEZIL HYDROCHLORIDE) (DONEPEZIL HYDROCHLORIDE) [Concomitant]

REACTIONS (2)
  - PYREXIA [None]
  - COORDINATION ABNORMAL [None]
